FAERS Safety Report 24588083 (Version 9)
Quarter: 2025Q1

REPORT INFORMATION
  Report Type: Spontaneous
  Country: US (occurrence: US)
  Receive Date: 20241107
  Receipt Date: 20250208
  Transmission Date: 20250408
  Serious: Yes (Other)
  Sender: UNITED THERAPEUTICS
  Company Number: US-UNITED THERAPEUTICS-UNT-2024-026164

PATIENT
  Age: 65 Year
  Sex: Female
  Weight: 65.76 kg

DRUGS (70)
  1. TYVASO [Suspect]
     Active Substance: TREPROSTINIL
     Indication: Pulmonary arterial hypertension
     Dosage: 54 ?G, QID
     Dates: start: 2021
  2. TYVASO [Suspect]
     Active Substance: TREPROSTINIL
     Dosage: 18 ?G, QID
  3. TYVASO [Suspect]
     Active Substance: TREPROSTINIL
     Dosage: 54 ?G, QID
  4. TYVASO [Suspect]
     Active Substance: TREPROSTINIL
  5. ORENITRAM [Suspect]
     Active Substance: TREPROSTINIL
     Indication: Pulmonary arterial hypertension
     Dosage: 0.25 MG, TID
     Dates: start: 202411, end: 2024
  6. ORENITRAM [Suspect]
     Active Substance: TREPROSTINIL
     Dosage: 0.375 MG, TID
     Dates: start: 2024
  7. ORENITRAM [Suspect]
     Active Substance: TREPROSTINIL
     Dosage: 1 MG, TID
     Dates: end: 20250103
  8. ORENITRAM [Suspect]
     Active Substance: TREPROSTINIL
  9. ORENITRAM [Suspect]
     Active Substance: TREPROSTINIL
     Dosage: 1 MG, TID
     Dates: start: 202501
  10. ORENITRAM [Suspect]
     Active Substance: TREPROSTINIL
  11. ORENITRAM [Suspect]
     Active Substance: TREPROSTINIL
     Indication: Pulmonary arterial hypertension
  12. ORENITRAM [Suspect]
     Active Substance: TREPROSTINIL
     Indication: Pulmonary arterial hypertension
  13. ORENITRAM [Suspect]
     Active Substance: TREPROSTINIL
     Indication: Pulmonary arterial hypertension
  14. DOXYCYCLINE HYCLATE [Suspect]
     Active Substance: DOXYCYCLINE HYCLATE
     Indication: Product used for unknown indication
  15. XYZAL [Concomitant]
     Active Substance: LEVOCETIRIZINE DIHYDROCHLORIDE
     Indication: Product used for unknown indication
     Dosage: 5 MG, QD
     Dates: start: 20220601, end: 20241019
  16. GAS-X [Concomitant]
     Active Substance: DIMETHICONE
     Indication: Product used for unknown indication
  17. MELATONIN [Concomitant]
     Active Substance: MELATONIN
     Indication: Product used for unknown indication
  18. NORVASC [Concomitant]
     Active Substance: AMLODIPINE BESYLATE
     Indication: Product used for unknown indication
     Dosage: 5 MG, QD (TAKE ONE TABLET BY MOUTH EVERY MORNING)
     Dates: start: 20231206
  19. NEILMED SINUS RINSE [Concomitant]
     Active Substance: SODIUM BICARBONATE\SODIUM CHLORIDE
     Indication: Product used for unknown indication
  20. COLACE [Concomitant]
     Active Substance: DOCUSATE SODIUM
     Indication: Constipation
     Dosage: 50 MG, BID
     Dates: start: 20230410, end: 20241019
  21. SUCRETS SORE THROAT [Concomitant]
     Indication: Product used for unknown indication
  22. THIAMINE HYDROCHLORIDE [Concomitant]
     Active Substance: THIAMINE HYDROCHLORIDE
     Indication: Product used for unknown indication
  23. TYLENOL [Concomitant]
     Active Substance: ACETAMINOPHEN
     Indication: Product used for unknown indication
  24. MIRALAX [Concomitant]
     Active Substance: POLYETHYLENE GLYCOL 3350
     Indication: Product used for unknown indication
     Dosage: 17 GRAM, QD
  25. VOLTAREN ARTHRITIS PAIN [Concomitant]
     Active Substance: DICLOFENAC SODIUM
     Indication: Product used for unknown indication
  26. MAGNESIUM [Concomitant]
     Active Substance: MAGNESIUM
     Indication: Product used for unknown indication
  27. VITAMIN D3 [Concomitant]
     Active Substance: CHOLECALCIFEROL
     Indication: Product used for unknown indication
     Dosage: 1 CAPSULE (5000 UNITS), QD
  28. POLYVINYL ALCOHOL\POVIDONE [Concomitant]
     Active Substance: POLYVINYL ALCOHOL\POVIDONE
     Indication: Product used for unknown indication
     Dosage: PLACE 2 DROPS INTO EYE(S) 3 (THREE) TIMES DAILY AS NEEDED
  29. ALYQ [Concomitant]
     Active Substance: TADALAFIL
     Indication: Product used for unknown indication
  30. TRACLEER [Concomitant]
     Active Substance: BOSENTAN
     Indication: Product used for unknown indication
     Dosage: 32 MG, QD
     Dates: start: 20180204
  31. TRACLEER [Concomitant]
     Active Substance: BOSENTAN
     Dosage: 62.5 MG, QD
     Dates: start: 20190208
  32. TRACLEER [Concomitant]
     Active Substance: BOSENTAN
     Dosage: 62.5 MG, BID
     Dates: start: 20190309
  33. PROBIOTICS NOS [Concomitant]
     Active Substance: PROBIOTICS NOS
     Indication: Product used for unknown indication
  34. PLAQUENIL [Concomitant]
     Active Substance: HYDROXYCHLOROQUINE SULFATE
     Indication: Product used for unknown indication
     Dosage: 200 MG, QD
     Dates: start: 20240425, end: 20241003
  35. REGULOID [Concomitant]
     Active Substance: PSYLLIUM HUSK
     Indication: Product used for unknown indication
  36. WESTCORT [Concomitant]
     Active Substance: HYDROCORTISONE VALERATE
     Indication: Product used for unknown indication
  37. CLARITIN [Concomitant]
     Active Substance: LORATADINE
     Indication: Product used for unknown indication
  38. CALCIUM CITRATE\CHOLECALCIFEROL [Concomitant]
     Active Substance: CALCIUM CITRATE\CHOLECALCIFEROL
     Indication: Product used for unknown indication
  39. FLUTICASONE PROPIONATE [Concomitant]
     Active Substance: FLUTICASONE PROPIONATE
     Indication: Product used for unknown indication
  40. IMODIUM A-D [Concomitant]
     Active Substance: LOPERAMIDE HYDROCHLORIDE
     Indication: Product used for unknown indication
  41. BACITRACIN [Concomitant]
     Active Substance: BACITRACIN
     Indication: Product used for unknown indication
  42. MINERALS\VITAMINS [Concomitant]
     Active Substance: MINERALS\VITAMINS
     Indication: Product used for unknown indication
  43. DEMANNOSE [Concomitant]
     Active Substance: DEMANNOSE
     Indication: Product used for unknown indication
     Dosage: 1000 MG, QD
  44. BENADRYL [Concomitant]
     Active Substance: DIPHENHYDRAMINE HYDROCHLORIDE
     Indication: Product used for unknown indication
     Dosage: 6.25 MG, QID
  45. PROTOPIC [Concomitant]
     Active Substance: TACROLIMUS
     Indication: Product used for unknown indication
  46. OXYGEN [Concomitant]
     Active Substance: OXYGEN
     Indication: Product used for unknown indication
  47. BACTROBAN [Concomitant]
     Active Substance: MUPIROCIN CALCIUM
     Indication: Product used for unknown indication
     Dosage: UNK, TID (APPLY 1 TREATMENT TOPICALLY 3 (THREE) TIMES DAILY)
  48. ZINC [Concomitant]
     Active Substance: ZINC
     Indication: Product used for unknown indication
  49. OMEPRAZOLE [Concomitant]
     Active Substance: OMEPRAZOLE
     Indication: Product used for unknown indication
     Dates: start: 20230707, end: 20241019
  50. ASCORBIC ACID\CRANBERRY [Concomitant]
     Active Substance: ASCORBIC ACID\CRANBERRY
     Indication: Product used for unknown indication
  51. LASIX [Concomitant]
     Active Substance: FUROSEMIDE
     Indication: Product used for unknown indication
     Dosage: 40 MG, QD
     Dates: start: 20240522
  52. METRONIDAZOLE [Concomitant]
     Active Substance: METRONIDAZOLE
     Indication: Product used for unknown indication
  53. ESTRACE [Concomitant]
     Active Substance: ESTRADIOL
     Indication: Product used for unknown indication
     Dates: start: 20230517, end: 20241019
  54. MUCINEX [Concomitant]
     Active Substance: GUAIFENESIN
     Indication: Product used for unknown indication
     Dosage: 300 MG, BID
  55. MOXIFLOXACIN [Concomitant]
     Active Substance: MOXIFLOXACIN
     Indication: Product used for unknown indication
  56. LOTEPREDNOL ETABONATE [Concomitant]
     Active Substance: LOTEPREDNOL ETABONATE
     Indication: Product used for unknown indication
  57. CIALIS [Concomitant]
     Active Substance: TADALAFIL
     Indication: Product used for unknown indication
     Dosage: 20 MG, QD
     Dates: start: 20231228, end: 20241227
  58. VITAMIN C [Concomitant]
     Active Substance: ASCORBIC ACID
     Indication: Product used for unknown indication
  59. CALCIUM CITRATE [Concomitant]
     Active Substance: CALCIUM CITRATE
     Indication: Product used for unknown indication
     Dosage: 315 MG, BID
  60. CLEOCIN T [Concomitant]
     Active Substance: CLINDAMYCIN PHOSPHATE
     Indication: Product used for unknown indication
  61. LACTOBACILLUS ACIDOPHILUS\LACTOBACILLUS DELBRUECKII SUBSP. BULGARICUS [Concomitant]
     Active Substance: LACTOBACILLUS ACIDOPHILUS\LACTOBACILLUS DELBRUECKII SUBSP. BULGARICUS
     Indication: Product used for unknown indication
  62. AMZEEQ [Concomitant]
     Active Substance: MINOCYCLINE HYDROCHLORIDE
     Indication: Product used for unknown indication
     Dosage: ONE TIME AS NEEDED FOR BITES
  63. SIMETHICONE (DIMETHICONE) [Concomitant]
     Active Substance: DIMETHICONE
     Indication: Flatulence
     Dosage: 31.25 MG, QID
  64. VITAMIN B6 [Concomitant]
     Active Substance: PYRIDOXINE HYDROCHLORIDE
     Indication: Product used for unknown indication
     Dosage: 100 MG, QD
  65. MAXITROL [Concomitant]
     Active Substance: DEXAMETHASONE\NEOMYCIN SULFATE\POLYMYXIN B SULFATE
     Indication: Product used for unknown indication
     Route: 047
  66. RESTASIS [Concomitant]
     Active Substance: CYCLOSPORINE
     Indication: Product used for unknown indication
     Dosage: PLACE 1 DROP INTO BOTH EYES 2 (TWO) TIMES DAILY
     Route: 047
  67. CRANBERRY CONCENTRATE [Concomitant]
     Active Substance: CRANBERRY CONCENTRATE
     Indication: Product used for unknown indication
     Dosage: TAKE BY MOUTH 2 (TWO) TIMES DAILY
  68. PYRIDOXINE HYDROCHLORIDE [Concomitant]
     Active Substance: PYRIDOXINE HYDROCHLORIDE
     Indication: Product used for unknown indication
  69. FLAXSEED [Concomitant]
     Active Substance: FLAX SEED
     Indication: Product used for unknown indication
  70. VITAMIN B12 [Concomitant]
     Active Substance: CYANOCOBALAMIN
     Indication: Product used for unknown indication

REACTIONS (60)
  - Pulmonary oedema [Unknown]
  - Pneumonia [Unknown]
  - Hypoxia [Unknown]
  - Cataract [Recovered/Resolved]
  - Bell^s palsy [Unknown]
  - Gastritis erosive [Unknown]
  - Anal abscess [Unknown]
  - Pelvic abscess [Unknown]
  - Abdominal abscess [Unknown]
  - Postoperative abscess [Unknown]
  - Fuchs^ syndrome [Unknown]
  - Conductive deafness [Unknown]
  - Visual impairment [Unknown]
  - Dry eye [Not Recovered/Not Resolved]
  - Hiatus hernia [Unknown]
  - Right ventricular dysfunction [Unknown]
  - Right ventricular dilatation [Unknown]
  - Dilatation atrial [Unknown]
  - Dyspnoea exertional [Unknown]
  - Corneal abrasion [Unknown]
  - Physical deconditioning [Unknown]
  - Cough [Not Recovered/Not Resolved]
  - Fatigue [Unknown]
  - Constipation [Not Recovered/Not Resolved]
  - Tongue disorder [Unknown]
  - Skin lesion [Unknown]
  - Folliculitis [Unknown]
  - Decubitus ulcer [Unknown]
  - Buttock injury [Unknown]
  - Pelvic floor dysfunction [Unknown]
  - Arthralgia [Unknown]
  - Ear discomfort [Unknown]
  - Abdominal distension [Unknown]
  - Abdominal pain upper [Unknown]
  - Lipoma [Unknown]
  - Vitamin D deficiency [Unknown]
  - Gastrooesophageal reflux disease [Not Recovered/Not Resolved]
  - Back pain [Unknown]
  - Headache [Unknown]
  - Pain in jaw [Recovering/Resolving]
  - Ear pain [Unknown]
  - Neck pain [Unknown]
  - Toothache [Unknown]
  - Ear infection [Unknown]
  - Swelling [Unknown]
  - Rosacea [Unknown]
  - Gastrointestinal microorganism overgrowth [Unknown]
  - Endometrial hyperplasia [Unknown]
  - Blood pressure fluctuation [Unknown]
  - Heart rate increased [Unknown]
  - Oxygen saturation decreased [Unknown]
  - Spinal osteoarthritis [Unknown]
  - Osteoporosis [Unknown]
  - Spinal retrolisthesis [Unknown]
  - Emphysema [Unknown]
  - Urinary tract infection [Unknown]
  - Sinus congestion [Recovering/Resolving]
  - Pain in extremity [Recovering/Resolving]
  - Therapeutic response unexpected [Unknown]
  - Product dose omission issue [Recovered/Resolved]

NARRATIVE: CASE EVENT DATE: 20230505
